FAERS Safety Report 10699318 (Version 1)
Quarter: 2015Q1

REPORT INFORMATION
  Report Type: Spontaneous
  Country: LV (occurrence: LV)
  Receive Date: 20150109
  Receipt Date: 20150109
  Transmission Date: 20150721
  Serious: Yes (Other)
  Sender: FDA-Public Use
  Company Number: PHHY2014LV170775

PATIENT
  Age: 32 Year
  Sex: Female
  Weight: 70 kg

DRUGS (1)
  1. OSPAMOX [Suspect]
     Active Substance: AMOXICILLIN
     Indication: PHARYNGITIS
     Dosage: 1 G, ONCE/SINGLE
     Route: 048
     Dates: start: 20141216, end: 20141216

REACTIONS (2)
  - Loss of consciousness [Unknown]
  - Body temperature increased [Recovering/Resolving]

NARRATIVE: CASE EVENT DATE: 20141217
